FAERS Safety Report 24696570 (Version 2)
Quarter: 2025Q3

REPORT INFORMATION
  Report Type: Spontaneous
  Country: US (occurrence: US)
  Receive Date: 20241204
  Receipt Date: 20250816
  Transmission Date: 20251020
  Serious: No
  Sender: ALEXION PHARMACEUTICALS
  Company Number: US-ASTRAZENECA-202412USA001494US

PATIENT
  Age: 35 Year
  Sex: Female

DRUGS (17)
  1. TEZSPIRE [Suspect]
     Active Substance: TEZEPELUMAB-EKKO
     Route: 065
  2. TEZSPIRE [Suspect]
     Active Substance: TEZEPELUMAB-EKKO
  3. DUPIXENT [Suspect]
     Active Substance: DUPILUMAB
     Indication: Asthma
     Dosage: 300 MILLIGRAM, QW
     Dates: start: 20230810
  4. AIRSUPRA [Concomitant]
     Active Substance: ALBUTEROL SULFATE\BUDESONIDE
  5. TRAZODONE [Concomitant]
     Active Substance: TRAZODONE HYDROCHLORIDE
  6. ADVAIR HFA [Concomitant]
     Active Substance: FLUTICASONE PROPIONATE\SALMETEROL XINAFOATE
  7. FLONASE [Concomitant]
     Active Substance: FLUTICASONE PROPIONATE
  8. VITAMIN D3 [Concomitant]
     Active Substance: CHOLECALCIFEROL
  9. ALBUTEROL [Concomitant]
     Active Substance: ALBUTEROL
  10. METHOCARBAMOL [Concomitant]
     Active Substance: METHOCARBAMOL
  11. HYDROXYZINE [Concomitant]
     Active Substance: HYDROXYZINE HYDROCHLORIDE
  12. TRELEGY ELLIPTA [Concomitant]
     Active Substance: FLUTICASONE FUROATE\UMECLIDINIUM BROMIDE\VILANTEROL TRIFENATATE
  13. MONTELUKAST [Concomitant]
     Active Substance: MONTELUKAST
  14. ADDERALL [Concomitant]
     Active Substance: AMPHETAMINE ASPARTATE\AMPHETAMINE SULFATE\DEXTROAMPHETAMINE SACCHARATE\DEXTROAMPHETAMINE SULFATE
  15. TACROLIMUS [Concomitant]
     Active Substance: TACROLIMUS
  16. MELATONIN [Concomitant]
     Active Substance: MELATONIN
  17. DOXYCYCLINE [Concomitant]
     Active Substance: DOXYCYCLINE

REACTIONS (1)
  - Rash [Unknown]
